FAERS Safety Report 6808664-X (Version None)
Quarter: 2010Q2

REPORT INFORMATION
  Report Type: 
  Country: None (occurrence: None)
  Receive Date: 20100629
  Receipt Date: 20090804
  Transmission Date: 20101027
  Serious: No
  Sender: FDA-Public Use
  Company Number: US-PFIZER INC-2009250808

PATIENT
  Age: 76 Year
  Sex: Female

DRUGS (10)
  1. XANAX [Suspect]
     Dosage: UNK
     Dates: start: 20090101, end: 20090806
  2. LUNESTA [Suspect]
     Indication: INSOMNIA
     Dosage: UNK
  3. NORVASC [Concomitant]
  4. LIPITOR [Concomitant]
  5. LEVOXYL [Concomitant]
  6. ACETYLSALICYLIC ACID [Concomitant]
  7. MULTI-VITAMINS [Concomitant]
  8. FISH OIL [Concomitant]
  9. GLUTAMATE SODIUM [Concomitant]
  10. DHEA [Concomitant]

REACTIONS (4)
  - ANXIETY [None]
  - DRUG INEFFECTIVE [None]
  - FRUSTRATION [None]
  - INSOMNIA [None]
